FAERS Safety Report 23618829 (Version 1)
Quarter: 2024Q1

REPORT INFORMATION
  Report Type: Spontaneous
  Country: US (occurrence: US)
  Receive Date: 20240311
  Receipt Date: 20240311
  Transmission Date: 20240410
  Serious: No
  Sender: FDA-Public Use
  Company Number: US-PFIZER INC-202400060704

PATIENT
  Age: 68 Year
  Sex: Female

DRUGS (4)
  1. PAXLOVID [Suspect]
     Active Substance: NIRMATRELVIR\RITONAVIR
     Indication: COVID-19 treatment
     Dosage: UNK
     Dates: start: 20240228, end: 20240304
  2. ELIQUIS [Concomitant]
     Active Substance: APIXABAN
  3. METOPROLOL [Concomitant]
     Active Substance: METOPROLOL
  4. VALSARTAN [Concomitant]
     Active Substance: VALSARTAN

REACTIONS (2)
  - COVID-19 [Recovering/Resolving]
  - Disease recurrence [Recovering/Resolving]

NARRATIVE: CASE EVENT DATE: 20240308
